FAERS Safety Report 14589387 (Version 1)
Quarter: 2018Q1

REPORT INFORMATION
  Report Type: Spontaneous
  Country: JP (occurrence: JP)
  Receive Date: 20180302
  Receipt Date: 20180302
  Transmission Date: 20180509
  Serious: Yes (Hospitalization, Other)
  Sender: FDA-Public Use
  Company Number: JP-ALVOGEN-2018-ALVOGEN-095347

PATIENT
  Age: 69 Year
  Sex: Female
  Weight: 41 kg

DRUGS (5)
  1. ROCURONIUM [Suspect]
     Active Substance: ROCURONIUM BROMIDE
     Indication: ENDOTRACHEAL INTUBATION
     Route: 042
  2. FENTANYL. [Suspect]
     Active Substance: FENTANYL
     Indication: GENERAL ANAESTHESIA
     Route: 042
  3. SEVOFLURANE. [Suspect]
     Active Substance: SEVOFLURANE
     Indication: ANAESTHESIA
     Dosage: 1.0-2.0%
  4. SEVOFLURANE. [Suspect]
     Active Substance: SEVOFLURANE
     Indication: ANAESTHESIA
     Dosage: 2%
  5. THIAMYLAL [Suspect]
     Active Substance: THIAMYLAL
     Indication: GENERAL ANAESTHESIA
     Route: 042

REACTIONS (1)
  - Atrioventricular block complete [Recovered/Resolved]
